FAERS Safety Report 19009718 (Version 2)
Quarter: 2021Q1

REPORT INFORMATION
  Report Type: Report from Study
  Country: KR (occurrence: KR)
  Receive Date: 20210315
  Receipt Date: 20210318
  Transmission Date: 20210420
  Serious: Yes (Death, Hospitalization)
  Sender: FDA-Public Use
  Company Number: KR-CELGENEUS-KOR-20190104573

PATIENT
  Age: 69 Year
  Sex: Male

DRUGS (168)
  1. POMALIDOMIDE [Suspect]
     Active Substance: POMALIDOMIDE
     Indication: PLASMA CELL MYELOMA
     Dosage: 4 MILLIGRAM
     Route: 048
     Dates: start: 20181022, end: 20181112
  2. ASPIRIN PROTECT [Concomitant]
     Active Substance: ASPIRIN
     Indication: THROMBOSIS PROPHYLAXIS
  3. ACTIFED [Concomitant]
     Indication: PROPHYLAXIS
  4. GRASIN [Concomitant]
     Dosage: 50 MILLIGRAM
     Route: 041
     Dates: start: 20190101, end: 20190110
  5. GRASIN [Concomitant]
     Dosage: 300 MICROGRAM
     Route: 058
     Dates: start: 20190129, end: 20190202
  6. TANTUM [Concomitant]
     Active Substance: BENZYDAMINE HYDROCHLORIDE
     Indication: MUCOSAL INFLAMMATION
     Dosage: 100 MILLILITER
     Route: 041
     Dates: start: 20181127, end: 20181218
  7. HARDCAL [Concomitant]
     Active Substance: CALCIUM CARBONATE\CHOLECALCIFEROL
     Dosage: 2 TABLET
     Route: 048
     Dates: start: 20190121, end: 20190223
  8. MEGACE [Concomitant]
     Active Substance: MEGESTROL ACETATE
     Indication: DECREASED APPETITE
     Dosage: 10 MILLILITER
     Route: 065
     Dates: start: 20181201, end: 20181212
  9. ALBUMIN [Concomitant]
     Active Substance: ALBUMIN HUMAN
     Indication: HYPOALBUMINAEMIA
     Dosage: 100 MILLILITER
     Route: 041
     Dates: start: 20181214, end: 20181214
  10. VECARON [Concomitant]
     Indication: RESPIRATORY FAILURE
     Dosage: 2 MILLIGRAM
     Route: 041
     Dates: start: 20181220, end: 20181220
  11. MAGNESIUM SULFATE. [Concomitant]
     Active Substance: MAGNESIUM SULFATE
     Dosage: 2 MILLIGRAM
     Route: 041
     Dates: start: 20190124, end: 20190124
  12. MANNITOL. [Concomitant]
     Active Substance: MANNITOL
     Indication: RENAL IMPAIRMENT
     Dosage: 200 MILLILITER
     Route: 011
     Dates: start: 20190102, end: 20190103
  13. TARIVID [Concomitant]
     Active Substance: OFLOXACIN
     Indication: INFECTION PROPHYLAXIS
     Dosage: 3.5 MILLIGRAM
     Route: 047
     Dates: start: 20190105, end: 20190222
  14. BEAROBAN [Concomitant]
     Indication: INFECTION PROPHYLAXIS
     Dosage: 10 GRAM
     Route: 065
     Dates: start: 20190108, end: 20190403
  15. MEDILAC [Concomitant]
     Indication: GASTROINTESTINAL DISORDER
     Dosage: 3 CAPSULE
     Route: 048
     Dates: start: 20190109, end: 201904
  16. PERIDEX [Concomitant]
     Active Substance: CHLORHEXIDINE GLUCONATE
     Indication: STOMATITIS
     Dosage: 6 GRAM
     Route: 065
     Dates: start: 20181001, end: 20181001
  17. PERIDEX [Concomitant]
     Active Substance: CHLORHEXIDINE GLUCONATE
     Dosage: 6 GRAM
     Route: 065
     Dates: start: 20190121, end: 20190121
  18. TRANEXAMIC ACID. [Concomitant]
     Active Substance: TRANEXAMIC ACID
     Dosage: 500 MILLIGRAM
     Route: 065
     Dates: start: 20190112, end: 20190409
  19. AMCILLIN [Concomitant]
     Indication: PNEUMONIA
     Dosage: 1000 MILLIGRAM
     Route: 048
     Dates: start: 20190111, end: 201904
  20. TASNA [Concomitant]
     Indication: ELECTROLYTE IMBALANCE
     Dosage: 1500 MILLIGRAM
     Route: 048
     Dates: start: 20190221, end: 20190222
  21. CYTOTEC [Concomitant]
     Active Substance: MISOPROSTOL
     Indication: GASTROINTESTINAL DISORDER PROPHYLAXIS
     Dosage: 400 MICROGRAM
     Route: 048
     Dates: start: 20181022, end: 20181126
  22. CAVIR [Concomitant]
     Indication: VIRAL HEPATITIS CARRIER
     Dosage: .5 MILLIGRAM
     Route: 048
     Dates: start: 20181126, end: 20190226
  23. ERDOS [Concomitant]
     Active Substance: ERDOSTEINE
     Indication: PROPHYLAXIS
  24. GRASIN [Concomitant]
     Indication: NEUTROPENIA
     Dosage: 900 MICROGRAM
     Route: 048
     Dates: start: 20181025, end: 20181025
  25. LEVOPLUS [Concomitant]
     Indication: PROPHYLAXIS
  26. LYRICA [Concomitant]
     Active Substance: PREGABALIN
     Indication: NEUROGENIC BLADDER
     Dosage: 75 MICROGRAM
     Route: 048
     Dates: start: 20181022, end: 20181212
  27. LANSTON [Concomitant]
     Active Substance: LANSOPRAZOLE
     Indication: GASTRITIS PROPHYLAXIS
     Dosage: 90 MILLIGRAM
     Route: 048
     Dates: start: 20181128, end: 20181212
  28. K?CONTIN [Concomitant]
     Dosage: 1800 MILLIGRAM
     Route: 048
     Dates: start: 20181209, end: 20181209
  29. CACL2 [Concomitant]
     Dosage: 1200 MILLIGRAM
     Route: 041
     Dates: start: 20190107, end: 20190131
  30. PENIRAMIN [Concomitant]
     Dosage: 2 MILLIGRAM
     Route: 041
     Dates: start: 20181230, end: 20181230
  31. PENIRAMIN [Concomitant]
     Dosage: 4 MILLIGRAM
     Route: 041
     Dates: start: 20190115, end: 20190115
  32. PENIRAMIN [Concomitant]
     Dosage: 4 MILLIGRAM
     Route: 041
     Dates: start: 20190221, end: 20190221
  33. ALBUMIN [Concomitant]
     Active Substance: ALBUMIN HUMAN
     Dosage: 100 MILLILITER
     Route: 041
     Dates: start: 20190108, end: 20190108
  34. VIT K1 [Concomitant]
     Active Substance: PHYTONADIONE
     Indication: COAGULOPATHY
     Dosage: 10 MILLIGRAM
     Route: 041
     Dates: start: 20181214, end: 20181216
  35. FURTMAN [Concomitant]
     Indication: PARENTERAL NUTRITION
     Route: 041
     Dates: start: 20181219, end: 20190131
  36. FENTANYL. [Concomitant]
     Active Substance: FENTANYL
     Dosage: 50 MICROGRAM
     Route: 041
     Dates: start: 20190101, end: 20190101
  37. FENTANYL. [Concomitant]
     Active Substance: FENTANYL
     Dosage: 100 MICROGRAM
     Route: 041
     Dates: start: 20190102, end: 20190103
  38. FENTANYL. [Concomitant]
     Active Substance: FENTANYL
     Dosage: 50 MICROGRAM
     Route: 041
     Dates: start: 20190104, end: 20190104
  39. FENTANYL. [Concomitant]
     Active Substance: FENTANYL
     Dosage: 50 MICROGRAM
     Route: 041
     Dates: start: 20190120, end: 20190120
  40. NORPIN [Concomitant]
     Indication: CARDIAC DYSFUNCTION
     Dosage: 8 MILLIGRAM
     Route: 041
     Dates: start: 20181220, end: 20181220
  41. DIGOXIN. [Concomitant]
     Active Substance: DIGOXIN
     Indication: CARDIAC DYSFUNCTION
     Dosage: 1.125 MILLIGRAM
     Route: 041
     Dates: start: 20181231, end: 20190101
  42. PERDIPINE [Concomitant]
     Active Substance: NICARDIPINE HYDROCHLORIDE
     Indication: PAIN PROPHYLAXIS
     Dosage: 50 MILLIGRAM
     Route: 041
     Dates: start: 20190111, end: 20190130
  43. TOPISOL MILK LOTION [Concomitant]
     Indication: DERMATITIS
     Dosage: 50 GRAM
     Route: 065
     Dates: start: 20190207, end: 20190207
  44. ATROVENT [Concomitant]
     Active Substance: IPRATROPIUM BROMIDE
     Indication: ASTHMA
     Dosage: 2 MILLIGRAM
     Route: 055
     Dates: start: 20190301, end: 20190301
  45. DEXAMETHASONE. [Suspect]
     Active Substance: DEXAMETHASONE
     Indication: PLASMA CELL MYELOMA
     Dosage: 20 MILLIGRAM
     Route: 065
     Dates: start: 20181022, end: 20181112
  46. LOPERAMIDE [Concomitant]
     Active Substance: LOPERAMIDE
     Indication: CONSTIPATION PROPHYLAXIS
     Dosage: 252 MILLIGRAM
     Route: 048
     Dates: start: 20181022, end: 20181127
  47. ZOMETA [Concomitant]
     Active Substance: ZOLEDRONIC ACID
     Indication: OSTEOLYSIS
     Dosage: 4 MILLIGRAM
     Route: 041
     Dates: start: 20181022, end: 20181022
  48. MUCOSTA [Concomitant]
     Active Substance: REBAMIPIDE
     Indication: PROPHYLAXIS
  49. LEVOPLUS [Concomitant]
     Indication: URINARY TRACT INFECTION
     Dosage: 750 MICROGRAM
     Route: 048
     Dates: start: 20181109, end: 20181126
  50. MAXIPIME [Concomitant]
     Active Substance: CEFEPIME HYDROCHLORIDE
     Indication: PNEUMONIA
  51. PLASMA SOLUTION [Concomitant]
     Indication: PROPHYLAXIS
  52. MUCOMYST [Concomitant]
     Active Substance: ACETYLCYSTEINE
     Indication: ASTHMA
     Dosage: 2400 MILLIGRAM
     Route: 055
     Dates: start: 20181127, end: 201904
  53. ULTRACET [Concomitant]
     Active Substance: ACETAMINOPHEN\TRAMADOL HYDROCHLORIDE
     Indication: PAIN PROPHYLAXIS
     Dosage: 2 TABLET
     Route: 048
     Dates: start: 20181203
  54. CACL2 [Concomitant]
     Indication: ELECTROLYTE IMBALANCE
     Dosage: 600 MILLIGRAM
     Route: 041
     Dates: start: 20181210, end: 20181210
  55. PENIRAMIN [Concomitant]
     Dosage: 2 MILLIGRAM
     Route: 041
     Dates: start: 20181222, end: 20181222
  56. MUCOSTEN [Concomitant]
     Indication: ASTHMA
     Dosage: 1200 MILLIGRAM
     Route: 041
     Dates: start: 20181214, end: 20190204
  57. SMOFKABIVEN [Concomitant]
     Active Substance: AMINO ACIDS\DEXTROSE\ELECTROLYTES NOS\SOYBEAN OIL
     Indication: PARENTERAL NUTRITION
     Dosage: 986 MILLILITER
     Route: 041
     Dates: start: 20181214, end: 20181218
  58. PENIDEX [Concomitant]
     Dosage: 6 GRAM
     Route: 065
     Dates: start: 20190204, end: 20190204
  59. NEUTROGIN [Concomitant]
     Active Substance: LENOGRASTIM
     Indication: NEUTROPENIA
     Dosage: 250 MICROGRAM
     Route: 058
     Dates: start: 20181217, end: 20181229
  60. PANTOLOC [Concomitant]
     Active Substance: PANTOPRAZOLE SODIUM
     Indication: GASTROINTESTINAL DISORDER
     Dosage: 40 MILLILITER
     Route: 041
     Dates: start: 20181218, end: 20190118
  61. UROPASS [Concomitant]
     Indication: PARENTERAL NUTRITION
     Dosage: 500 MILLILITER
     Route: 041
     Dates: start: 20181219, end: 20190131
  62. FENTANYL. [Concomitant]
     Active Substance: FENTANYL
     Indication: PAIN PROPHYLAXIS
     Dosage: 50 MICROGRAM
     Route: 041
     Dates: start: 20181220, end: 20181220
  63. FENTANYL. [Concomitant]
     Active Substance: FENTANYL
     Dosage: 100 MICROGRAM
     Route: 041
     Dates: start: 20190107, end: 20190107
  64. FENTANYL. [Concomitant]
     Active Substance: FENTANYL
     Dosage: 50 MICROGRAM
     Route: 041
     Dates: start: 20190117
  65. FRESOFOL MCT [Concomitant]
     Indication: RESPIRATORY FAILURE
     Dosage: 1000 MICROGRAM
     Route: 041
     Dates: start: 20181220, end: 201904
  66. NORPIN [Concomitant]
     Dosage: 8 MILLIGRAM
     Route: 041
     Dates: start: 20190308, end: 20190310
  67. MAGNESIUM SULFATE. [Concomitant]
     Active Substance: MAGNESIUM SULFATE
     Dosage: 2 MILLIGRAM
     Route: 041
     Dates: start: 20190113, end: 20190113
  68. VIGAMOX [Concomitant]
     Active Substance: MOXIFLOXACIN HYDROCHLORIDE
     Dosage: 20 MILLILITER
     Route: 047
     Dates: start: 20190109, end: 20190109
  69. PERIDEX [Concomitant]
     Active Substance: CHLORHEXIDINE GLUCONATE
     Dosage: 6 GRAM
     Route: 065
     Dates: start: 20190125, end: 20190125
  70. PERIDEX [Concomitant]
     Active Substance: CHLORHEXIDINE GLUCONATE
     Dosage: 6 GRAM
     Route: 065
     Dates: start: 20190129, end: 20190129
  71. FOY [Concomitant]
     Active Substance: GABEXATE MESYLATE
     Indication: PNEUMONIA
     Dosage: 100MG/V
     Route: 065
     Dates: start: 20190202, end: 20190404
  72. POMALIDOMIDE [Suspect]
     Active Substance: POMALIDOMIDE
     Dosage: 3 MILLIGRAM
     Route: 048
     Dates: start: 20181119, end: 20181210
  73. DEXAMETHASONE. [Suspect]
     Active Substance: DEXAMETHASONE
     Indication: PNEUMONIA
     Dosage: 40 MILLIGRAM
     Route: 065
     Dates: start: 20181119, end: 20181210
  74. DEXAMETHASONE. [Suspect]
     Active Substance: DEXAMETHASONE
     Dosage: 5 MILLIGRAM
     Route: 067
     Dates: start: 20181219, end: 20181228
  75. ASPIRIN PROTECT [Concomitant]
     Active Substance: ASPIRIN
     Indication: THROMBOSIS PROPHYLAXIS
     Dosage: 100 MILLIGRAM
     Route: 048
     Dates: start: 20181022, end: 20190212
  76. GRASIN [Concomitant]
     Dosage: 300 MICROGRAM
     Route: 058
     Dates: start: 20181127, end: 20181216
  77. SODIUM BICARBONATE. [Concomitant]
     Active Substance: SODIUM BICARBONATE
     Indication: ELECTROLYTE IMBALANCE
     Dosage: 40 MILLIEQUIVALENTS
     Route: 041
     Dates: start: 20181126, end: 201904
  78. SMECTA [Concomitant]
     Active Substance: MONTMORILLONITE
     Indication: DIARRHOEA
     Dosage: 40 MILLIGRAM
     Route: 048
     Dates: start: 20181203
  79. HARDCAL [Concomitant]
     Active Substance: CALCIUM CARBONATE\CHOLECALCIFEROL
     Indication: OSTEOLYSIS
     Dosage: 2 TABLET
     Route: 048
     Dates: start: 20181204, end: 20181212
  80. MEGACE [Concomitant]
     Active Substance: MEGESTROL ACETATE
     Dosage: 60 MILLIGRAM
     Route: 048
     Dates: start: 20190111, end: 20190111
  81. PENIRAMIN [Concomitant]
     Dosage: 4 MILLIGRAM
     Route: 041
     Dates: start: 20181128, end: 20181128
  82. PENIRAMIN [Concomitant]
     Dosage: 4 MILLIGRAM
     Route: 041
     Dates: start: 20181130, end: 20181130
  83. PENIRAMIN [Concomitant]
     Dosage: 4 MILLIGRAM
     Route: 041
     Dates: start: 20181205, end: 20181205
  84. PENIRAMIN [Concomitant]
     Dosage: 4 MILLIGRAM
     Route: 041
     Dates: start: 20181001, end: 20181001
  85. PENIRAMIN [Concomitant]
     Dosage: 4 MILLIGRAM
     Route: 041
     Dates: start: 20190111, end: 20190111
  86. VASELINE PURE [Concomitant]
     Active Substance: PETROLATUM
     Indication: DERMATITIS
     Dosage: 50 MILLIGRAM
     Route: 061
     Dates: start: 20181212, end: 20181212
  87. VENTOLIN [Concomitant]
     Active Substance: ALBUTEROL SULFATE
     Indication: ASTHMA
     Dosage: 1 PACK
     Route: 055
     Dates: start: 20181212, end: 20181218
  88. ALBUMIN [Concomitant]
     Active Substance: ALBUMIN HUMAN
     Dosage: 100 MILLILITER
     Route: 041
     Dates: start: 20190219, end: 20190220
  89. FENTANYL. [Concomitant]
     Active Substance: FENTANYL
     Dosage: 150 MICROGRAM
     Route: 041
     Dates: start: 20181230, end: 20181230
  90. FENTANYL. [Concomitant]
     Active Substance: FENTANYL
     Dosage: 100 MICROGRAM
     Route: 041
     Dates: start: 20190129, end: 20190129
  91. MAGNESIUM SULFATE. [Concomitant]
     Active Substance: MAGNESIUM SULFATE
     Dosage: 2 MILLIGRAM
     Route: 041
     Dates: start: 20190128, end: 20190128
  92. BOSMIN [Concomitant]
     Active Substance: EPINEPHRINE
     Indication: ASTHMA
     Dosage: 500 MILLILITER
     Route: 055
     Dates: start: 20190106, end: 20190210
  93. VOLULYTE [Concomitant]
     Indication: FLUID IMBALANCE
     Dosage: 500 MILLIGRAM
     Route: 041
     Dates: start: 201901, end: 201901
  94. TRANEXAMIC ACID. [Concomitant]
     Active Substance: TRANEXAMIC ACID
     Indication: HAEMOLYSIS
     Dosage: 500 MILLIGRAM
     Route: 065
     Dates: start: 20190110, end: 20190301
  95. VITAMIN D3 [Concomitant]
     Active Substance: CHOLECALCIFEROL
     Indication: VITAMIN SUPPLEMENTATION
     Dosage: 7.5 INTERNATIONAL UNITS MILLIONS
     Route: 030
     Dates: start: 20190121, end: 20190121
  96. XL?1 [Concomitant]
     Indication: INFECTION PROPHYLAXIS
     Dosage: 10 GRAM
     Route: 061
     Dates: start: 20190131, end: 20190131
  97. HARNAL [Concomitant]
     Active Substance: TAMSULOSIN HYDROCHLORIDE
     Indication: NEUROGENIC BLADDER
     Dosage: .2 MILLIGRAM
     Route: 048
     Dates: start: 20181125, end: 20181212
  98. MUCOSTA [Concomitant]
     Active Substance: REBAMIPIDE
     Indication: GASTROINTESTINAL DISORDER
     Dosage: 300 MILLIGRAM
     Route: 048
     Dates: start: 20181109, end: 20181126
  99. SODIUM BICARBONATE. [Concomitant]
     Active Substance: SODIUM BICARBONATE
     Indication: PROPHYLAXIS
  100. LASIX [Concomitant]
     Active Substance: FUROSEMIDE
     Indication: FLUID RETENTION
     Dosage: 10 MILLIGRAM
     Route: 041
     Dates: start: 20181126, end: 201904
  101. LASIX [Concomitant]
     Active Substance: FUROSEMIDE
     Indication: PROPHYLAXIS
  102. K?CONTIN [Concomitant]
     Indication: ELECTROLYTE IMBALANCE
     Dosage: 90 MILLIGRAM
     Route: 048
     Dates: start: 20181128, end: 20181201
  103. PENIRAMIN [Concomitant]
     Dosage: 4 MILLIGRAM
     Route: 041
     Dates: start: 20181126, end: 20181126
  104. PENIRAMIN [Concomitant]
     Dosage: 4 MILLIGRAM
     Route: 041
     Dates: start: 20181207, end: 20181207
  105. PENIRAMIN [Concomitant]
     Dosage: 2 MILLIGRAM
     Route: 041
     Dates: start: 20181216, end: 20181216
  106. NEXIUM [Concomitant]
     Active Substance: ESOMEPRAZOLE MAGNESIUM
     Indication: END STAGE RENAL DISEASE
     Dosage: 80 MILLIGRAM
     Route: 041
     Dates: start: 20181213, end: 20190409
  107. ALBUMIN [Concomitant]
     Active Substance: ALBUMIN HUMAN
     Dosage: 100 MILLILITER
     Route: 041
     Dates: start: 20181230, end: 20181231
  108. ALBUMIN [Concomitant]
     Active Substance: ALBUMIN HUMAN
     Dosage: 100 MILLILITER
     Route: 041
     Dates: start: 20190103, end: 20190104
  109. PHOSTEN [Concomitant]
     Indication: ELECTROLYTE IMBALANCE
     Dosage: 20 MILLIGRAM
     Route: 041
     Dates: start: 20181214, end: 20190129
  110. VIT K1 [Concomitant]
     Active Substance: PHYTONADIONE
     Dosage: 10 MILLIGRAM
     Route: 041
     Dates: start: 20181218, end: 20190201
  111. PENIDEX [Concomitant]
     Dosage: 6 GRAM
     Route: 065
     Dates: start: 20181223, end: 20181223
  112. FENTANYL. [Concomitant]
     Active Substance: FENTANYL
     Dosage: 100 MICROGRAM
     Route: 041
     Dates: start: 20181229, end: 20181229
  113. FENTANYL. [Concomitant]
     Active Substance: FENTANYL
     Dosage: 200 MICROGRAM
     Route: 041
     Dates: start: 20190119, end: 20190119
  114. FENTANYL. [Concomitant]
     Active Substance: FENTANYL
     Dosage: 50 MICROGRAM
     Route: 041
     Dates: start: 20190122, end: 20190122
  115. KYNEX [Concomitant]
     Active Substance: SULFAMETHOXYPYRIDAZINE
     Indication: DRY EYE
     Dosage: 1BOX
     Route: 047
     Dates: start: 20181221, end: 20181221
  116. MAGNESIUM SULFATE. [Concomitant]
     Active Substance: MAGNESIUM SULFATE
     Dosage: 2 MILLIGRAM
     Route: 041
     Dates: start: 20190118, end: 20190118
  117. MAGNESIUM SULFATE. [Concomitant]
     Active Substance: MAGNESIUM SULFATE
     Dosage: 2 MILLIGRAM
     Route: 041
     Dates: start: 20190130, end: 20190130
  118. HEPARIN [Concomitant]
     Active Substance: HEPARIN SODIUM
     Indication: COAGULOPATHY
     Dosage: 2500 UNIT
     Route: 065
     Dates: start: 20190102, end: 20190103
  119. TRANEXAMIC ACID. [Concomitant]
     Active Substance: TRANEXAMIC ACID
     Dosage: 500 MILLIGRAM
     Route: 065
     Dates: start: 201812, end: 20190125
  120. FLASINYL [Concomitant]
     Indication: PNEUMONIA
     Dosage: 750 MILLIGRAM
     Route: 048
     Dates: start: 20190206, end: 20190208
  121. DUPHALAC [Concomitant]
     Active Substance: LACTULOSE
     Indication: CONSTIPATION PROPHYLAXIS
     Dosage: 45 MILLILITER
     Route: 048
     Dates: start: 20190304, end: 20190327
  122. DEXAMETHASONE. [Suspect]
     Active Substance: DEXAMETHASONE
     Dosage: 5 MILLIGRAM
     Route: 067
     Dates: start: 20181213, end: 20181213
  123. ERDOS [Concomitant]
     Active Substance: ERDOSTEINE
     Indication: URINARY TRACT INFECTION
     Dosage: 900 MILLIGRAM
     Route: 048
     Dates: start: 20181109, end: 20181126
  124. GRASIN [Concomitant]
     Indication: PROPHYLAXIS
     Dosage: 900 MICROGRAM
     Route: 048
     Dates: start: 20181109, end: 20181109
  125. MAXIPIME [Concomitant]
     Active Substance: CEFEPIME HYDROCHLORIDE
     Indication: PNEUMONIA
     Dosage: 2000 MILLIGRAM
     Route: 041
     Dates: start: 20190213, end: 20190221
  126. PLASMA SOLUTION [Concomitant]
     Indication: ELECTROLYTE IMBALANCE
     Dosage: 1000 MILLIGRAM
     Route: 041
     Dates: start: 20181126, end: 20181126
  127. PENIRAMIN [Concomitant]
     Indication: HYPERSENSITIVITY
     Dosage: 2 MILLIGRAM
     Route: 041
     Dates: start: 20181109, end: 20181109
  128. PENIRAMIN [Concomitant]
     Dosage: 2 MILLIGRAM
     Route: 041
     Dates: start: 20190117, end: 20190117
  129. SMOFKABIVEN [Concomitant]
     Active Substance: AMINO ACIDS\DEXTROSE\ELECTROLYTES NOS\SOYBEAN OIL
     Dosage: 986 MILLILITER
     Route: 041
     Dates: start: 20190212, end: 20190225
  130. PENIDEX [Concomitant]
     Indication: MOUTH SWELLING
     Dosage: 6 GRAM
     Route: 065
     Dates: start: 20181215, end: 20181215
  131. TAMIPOOL [Concomitant]
     Active Substance: VITAMINS
     Dosage: 1000 MILLILITER
     Route: 041
     Dates: start: 20181219, end: 20190131
  132. FENTANYL. [Concomitant]
     Active Substance: FENTANYL
     Dosage: 200 MICROGRAM
     Route: 041
     Dates: start: 20181223, end: 20181227
  133. FENTANYL. [Concomitant]
     Active Substance: FENTANYL
     Dosage: 500 MICROGRAM
     Route: 041
     Dates: start: 20190124, end: 20190124
  134. MIDAZOLAM. [Concomitant]
     Active Substance: MIDAZOLAM
     Indication: RESPIRATORY FAILURE
     Dosage: 2 MILLIGRAM
     Route: 041
     Dates: start: 20181220, end: 20181220
  135. MAGNESIUM SULFATE. [Concomitant]
     Active Substance: MAGNESIUM SULFATE
     Dosage: 2 MILLIGRAM
     Route: 041
     Dates: start: 20190126, end: 20190126
  136. KALIMATE [Concomitant]
     Active Substance: CALCIUM POLYSTYRENE SULFONATE
     Indication: ELECTROLYTE IMBALANCE
     Dosage: 15 GRAM
     Route: 048
     Dates: start: 20181227, end: 20190102
  137. WINUF [Concomitant]
     Indication: PARENTERAL NUTRITION
     Dosage: 1435ML/BAG
     Route: 065
     Dates: start: 20190201, end: 20190310
  138. GODEX [Concomitant]
     Indication: HEPATIC FUNCTION ABNORMAL
     Dosage: 2 CAPSULE
     Route: 048
     Dates: start: 20190301, end: 20190322
  139. ZOMETA [Concomitant]
     Active Substance: ZOLEDRONIC ACID
     Indication: PROPHYLAXIS
     Dosage: 4 MILLIGRAM
     Route: 041
     Dates: start: 20181110, end: 20181110
  140. ACTIFED [Concomitant]
     Indication: URINARY TRACT INFECTION
     Dosage: 2 TABLET
     Route: 048
     Dates: start: 20181109, end: 20181126
  141. TROPHERINE [Concomitant]
     Indication: CATARACT
     Dosage: .8 MILLILITER
     Route: 047
     Dates: start: 20181116, end: 20181126
  142. COTRIM [Concomitant]
     Active Substance: SULFAMETHOXAZOLE\TRIMETHOPRIM
     Indication: ASTHMA
     Dosage: 20 MILLILITER
     Route: 041
     Dates: start: 20181127, end: 20181226
  143. CACL2 [Concomitant]
     Dosage: 600 MILLIGRAM
     Route: 041
     Dates: start: 20190104, end: 20190106
  144. SMOFLIPID [Concomitant]
     Active Substance: FISH OIL\MEDIUM-CHAIN TRIGLYCERIDES\OLIVE OIL\SOYBEAN OIL
     Indication: NUTRITIONAL SUPPLEMENTATION
     Dosage: 500 MILLILITER
     Route: 041
     Dates: start: 20181213, end: 20181213
  145. XEROVA [Concomitant]
     Indication: SALIVARY HYPERSECRETION
     Dosage: 40 MILLILITER
     Route: 065
     Dates: start: 20181217, end: 20181217
  146. TAMIPOOL [Concomitant]
     Active Substance: VITAMINS
     Indication: PARENTERAL NUTRITION
     Dosage: 5 MILLILITER
     Route: 041
     Dates: start: 20181219, end: 20190329
  147. FENTANYL. [Concomitant]
     Active Substance: FENTANYL
     Dosage: 50 MICROGRAM
     Route: 041
     Dates: start: 20190110, end: 20190110
  148. FENTANYL. [Concomitant]
     Active Substance: FENTANYL
     Dosage: 50 MICROGRAM
     Route: 041
     Dates: start: 20190131, end: 20190131
  149. MAGNESIUM SULFATE. [Concomitant]
     Active Substance: MAGNESIUM SULFATE
     Indication: ELECTROLYTE IMBALANCE
     Dosage: 2 MILLIGRAM
     Route: 041
     Dates: start: 20181223, end: 20181223
  150. VIGAMOX [Concomitant]
     Active Substance: MOXIFLOXACIN HYDROCHLORIDE
     Dosage: 20 MILLILITER
     Route: 047
     Dates: start: 20190118, end: 20190126
  151. POTASSIUM CHLORIDE. [Concomitant]
     Active Substance: POTASSIUM CHLORIDE
     Indication: ELECTROLYTE IMBALANCE
     Dosage: 3.6 GRAM
     Route: 048
     Dates: start: 20190129, end: 20190130
  152. BOSOMI [Concomitant]
     Indication: SKIN DISORDER
     Dosage: 20 MILLIGRAM
     Route: 065
     Dates: start: 20190207, end: 20190207
  153. ALDACTONE [Concomitant]
     Active Substance: SPIRONOLACTONE
     Indication: FLUID IMBALANCE
     Dosage: 12.6 MILLIGRAM
     Route: 048
     Dates: start: 20190219, end: 20190224
  154. HYSONE [Concomitant]
     Indication: ASTHMA
     Dosage: 25 MILLIGRAM
     Route: 048
     Dates: start: 20181022, end: 20181128
  155. TARGIN CR [Concomitant]
     Active Substance: NALOXONE HYDROCHLORIDE\OXYCODONE HYDROCHLORIDE
     Indication: PAIN PROPHYLAXIS
     Dosage: 2 TABLET
     Route: 048
     Dates: start: 20181207
  156. CACL2 [Concomitant]
     Dosage: 600 MILLIGRAM
     Route: 041
     Dates: start: 20181213, end: 20181227
  157. PENIRAMIN [Concomitant]
     Dosage: 2 MILLIGRAM
     Route: 041
     Dates: start: 20181215, end: 20181215
  158. ALBUMIN [Concomitant]
     Active Substance: ALBUMIN HUMAN
     Dosage: 100 MILLILITER
     Route: 041
     Dates: start: 20181225, end: 20181227
  159. VIT K1 [Concomitant]
     Active Substance: PHYTONADIONE
     Dosage: 10 MILLIGRAM
     Route: 041
     Dates: start: 20190218, end: 20190227
  160. FENTANYL. [Concomitant]
     Active Substance: FENTANYL
     Dosage: 50 MICROGRAM
     Route: 041
     Dates: start: 20190106, end: 20190106
  161. MAGNESIUM SULFATE. [Concomitant]
     Active Substance: MAGNESIUM SULFATE
     Dosage: 2 MILLIGRAM
     Route: 041
     Dates: start: 20190115, end: 20190115
  162. ADELAVIN [Concomitant]
     Active Substance: FLAVIN ADENINE DINUCLEOTIDE
     Indication: LIVER DISORDER
     Dosage: 2 MILLILITER
     Route: 041
     Dates: start: 20181230, end: 20190321
  163. URSA [Concomitant]
     Active Substance: URSODIOL
     Indication: GASTROINTESTINAL DISORDER
     Dosage: 600 MILLIGRAM
     Route: 048
     Dates: start: 20181230, end: 20181231
  164. URSA [Concomitant]
     Active Substance: URSODIOL
     Dosage: 300 MILLIGRAM
     Route: 048
     Dates: start: 20190218, end: 20190222
  165. VIGAMOX [Concomitant]
     Active Substance: MOXIFLOXACIN HYDROCHLORIDE
     Indication: INFECTION PROPHYLAXIS
     Dosage: 20 MILLILITER
     Route: 047
     Dates: start: 20190106, end: 20190106
  166. AMBISOME [Concomitant]
     Active Substance: AMPHOTERICIN B
     Indication: PNEUMONIA
     Dosage: 280 MILLIGRAM
     Route: 041
     Dates: start: 20190111, end: 20190116
  167. MYDRIN P [Concomitant]
     Active Substance: PHENYLEPHRINE HYDROCHLORIDE\TROPICAMIDE
     Indication: PREMEDICATION
     Dosage: 10 MILLILITER
     Route: 047
     Dates: start: 20190201, end: 20190201
  168. MOTILITONE [Concomitant]
     Active Substance: HERBALS
     Indication: GASTROINTESTINAL DISORDER
     Dosage: 390 MILLIGRAM
     Route: 048
     Dates: start: 20190312, end: 20190322

REACTIONS (1)
  - Pneumonia [Fatal]

NARRATIVE: CASE EVENT DATE: 20181126
